FAERS Safety Report 15947527 (Version 1)
Quarter: 2019Q1

REPORT INFORMATION
  Report Type: Spontaneous
  Country: US (occurrence: US)
  Receive Date: 20190121
  Receipt Date: 20190121
  Transmission Date: 20190417
  Serious: No
  Sender: FDA-Public Use
  Company Number: None

PATIENT
  Age: 51 Year
  Sex: Female

DRUGS (1)
  1. BENLYSTA [Suspect]
     Active Substance: BELIMUMAB
     Route: 058
     Dates: start: 201812, end: 20190110

REACTIONS (5)
  - Stomatitis [None]
  - Dyspnoea [None]
  - Injection site rash [None]
  - Hordeolum [None]
  - Hypersensitivity [None]

NARRATIVE: CASE EVENT DATE: 20190121
